FAERS Safety Report 21199950 (Version 2)
Quarter: 2022Q4

REPORT INFORMATION
  Report Type: Spontaneous
  Country: US (occurrence: US)
  Receive Date: 20220811
  Receipt Date: 20221005
  Transmission Date: 20230112
  Serious: Yes (Other)
  Sender: FDA-Public Use
  Company Number: US-BAYER-2022A108707

PATIENT
  Sex: Male

DRUGS (3)
  1. KOGENATE FS [Suspect]
     Active Substance: ANTIHEMOPHILIC FACTOR, HUMAN RECOMBINANT
     Indication: Factor VIII deficiency
     Dosage: 1856-2320 IU, SLOW IV PUSH, PRN FOR MINOR BLEEDS
     Route: 042
     Dates: start: 202201
  2. KOGENATE FS [Suspect]
     Active Substance: ANTIHEMOPHILIC FACTOR, HUMAN RECOMBINANT
     Indication: Factor VIII deficiency
     Dosage: 1856-2320 IU, PRN FOR MAJOR OR JOINT BLEEDS AT THE TIME OF BLEED
     Route: 042
     Dates: start: 202201
  3. HEMLIBRA [Concomitant]
     Active Substance: EMICIZUMAB-KXWH

REACTIONS (2)
  - Hand fracture [None]
  - Traumatic haemorrhage [None]
